FAERS Safety Report 21225934 (Version 1)
Quarter: 2022Q3

REPORT INFORMATION
  Report Type: Spontaneous
  Country: US (occurrence: US)
  Receive Date: 20220818
  Receipt Date: 20220818
  Transmission Date: 20221027
  Serious: Yes (Other)
  Sender: FDA-Public Use
  Company Number: US-SUN PHARMACEUTICAL INDUSTRIES LTD-2022R1-349184

PATIENT
  Age: 53 Year
  Sex: Female

DRUGS (6)
  1. BUPROPION [Suspect]
     Active Substance: BUPROPION
     Indication: Alcohol use disorder
     Dosage: UNK
     Route: 065
  2. BUPROPION [Suspect]
     Active Substance: BUPROPION
     Indication: Generalised anxiety disorder
  3. BUPROPION [Suspect]
     Active Substance: BUPROPION
     Indication: Major depression
  4. DULOXETINE [Suspect]
     Active Substance: DULOXETINE
     Indication: Major depression
     Dosage: UNK
     Route: 065
  5. DULOXETINE [Suspect]
     Active Substance: DULOXETINE
     Indication: Generalised anxiety disorder
  6. DULOXETINE [Suspect]
     Active Substance: DULOXETINE
     Indication: Alcohol use disorder

REACTIONS (1)
  - Reversible cerebral vasoconstriction syndrome [Unknown]
